FAERS Safety Report 15568380 (Version 2)
Quarter: 2019Q2

REPORT INFORMATION
  Report Type: Spontaneous
  Country: US (occurrence: US)
  Receive Date: 20181031
  Receipt Date: 20190422
  Transmission Date: 20190711
  Serious: Yes (Other)
  Sender: FDA-Public Use
  Company Number: US-LUPIN PHARMACEUTICALS INC.-2018-07542

PATIENT
  Age: 82 Year
  Sex: Female
  Weight: 134 kg

DRUGS (1)
  1. LEVOFLOXACIN. [Suspect]
     Active Substance: LEVOFLOXACIN
     Indication: PNEUMONIA
     Dosage: 750 MG, SINGLE
     Route: 042

REACTIONS (2)
  - Neurotoxicity [Recovered/Resolved]
  - Seizure [Recovered/Resolved]
